FAERS Safety Report 6648519-7 (Version None)
Quarter: 2010Q1

REPORT INFORMATION
  Report Type: 
  Country: None (occurrence: None)
  Receive Date: 20100319
  Receipt Date: 20100315
  Transmission Date: 20100710
  Serious: Yes (Other)
  Sender: FDA-Public Use
  Company Number: 2010SP014682

PATIENT
  Age: 65 Year
  Sex: Female

DRUGS (3)
  1. PEG-INTRON        (PEGINTERFERON ALFA-2B) [Suspect]
     Indication: HEPATITIS C
     Dosage: SC
     Route: 058
  2. REBETOL [Suspect]
     Indication: HEPATITIS C
     Dosage: PO ; PO
     Route: 048
     Dates: start: 20091201
  3. INTERFERON [Suspect]
     Indication: HEPATITIS C
     Dosage: INDRP
     Route: 041
     Dates: start: 20091209

REACTIONS (3)
  - ECZEMA [None]
  - HYPOAESTHESIA [None]
  - STOMATITIS [None]
